FAERS Safety Report 11794006 (Version 1)
Quarter: 2015Q4

REPORT INFORMATION
  Report Type: Other
  Country: SK (occurrence: SK)
  Receive Date: 20151202
  Receipt Date: 20151202
  Transmission Date: 20160305
  Serious: Yes (Other)
  Sender: FDA-Public Use
  Company Number: SK-B. BRAUN MEDICAL INC.-1044910

PATIENT
  Age: 30 Year
  Sex: Male

DRUGS (7)
  1. METHYLPREDNISOLONE. [Concomitant]
     Active Substance: METHYLPREDNISOLONE
  2. MESALAZINE [Concomitant]
     Active Substance: MESALAMINE
  3. FERROUS SULFATE [Concomitant]
     Active Substance: FERROUS SULFATE\FERROUS SULFATE, DRIED
  4. INFLIXIMAB [Concomitant]
     Active Substance: INFLIXIMAB
  5. AZATHIOPRINE. [Concomitant]
     Active Substance: AZATHIOPRINE
  6. METRONIDAZOLE. [Suspect]
     Active Substance: METRONIDAZOLE
  7. CIPROFLOXACIN. [Concomitant]
     Active Substance: CIPROFLOXACIN

REACTIONS (4)
  - Myalgia [None]
  - Acne fulminans [None]
  - Pyrexia [None]
  - Arthralgia [None]
